FAERS Safety Report 7731351-0 (Version None)
Quarter: 2011Q3

REPORT INFORMATION
  Report Type: 
  Country: None (occurrence: None)
  Receive Date: 20110906
  Receipt Date: 20110615
  Transmission Date: 20111222
  Serious: Yes (Death, Other)
  Sender: FDA-Public Use
  Company Number: US-BAXTER-2007BH001540

PATIENT
  Sex: Male

DRUGS (2)
  1. PROPLEX T [Suspect]
     Indication: FACTOR VIII DEFICIENCY
     Route: 065
  2. HEMOFIL [Suspect]
     Indication: FACTOR VIII DEFICIENCY
     Route: 065

REACTIONS (4)
  - HIV INFECTION [None]
  - HEPATITIS B [None]
  - DEATH [None]
  - HEPATITIS C [None]
